FAERS Safety Report 25428846 (Version 2)
Quarter: 2025Q3

REPORT INFORMATION
  Report Type: Spontaneous
  Country: JP (occurrence: JP)
  Receive Date: 20250612
  Receipt Date: 20250709
  Transmission Date: 20251021
  Serious: No
  Sender: OTSUKA
  Company Number: JP-MMM-Otsuka-0CSHBJVU

PATIENT
  Age: 9 Decade
  Sex: Female

DRUGS (3)
  1. REXULTI [Suspect]
     Active Substance: BREXPIPRAZOLE
     Indication: Dementia Alzheimer^s type
     Dosage: 1.5 MG/DAY
     Route: 048
     Dates: start: 20250408, end: 20250609
  2. REXULTI [Suspect]
     Active Substance: BREXPIPRAZOLE
     Indication: Agitation
     Route: 048
     Dates: start: 202501, end: 2025
  3. REXULTI [Suspect]
     Active Substance: BREXPIPRAZOLE
     Indication: Aggression
     Route: 048
     Dates: end: 20250407

REACTIONS (1)
  - Parkinsonism [Recovering/Resolving]

NARRATIVE: CASE EVENT DATE: 20250609
